FAERS Safety Report 6423380-4 (Version None)
Quarter: 2009Q4

REPORT INFORMATION
  Report Type: 
  Country: None (occurrence: None)
  Receive Date: 20091102
  Receipt Date: 20091027
  Transmission Date: 20100525
  Serious: Yes (Other)
  Sender: FDA-Public Use
  Company Number: A0800128A

PATIENT
  Age: 63 Year
  Sex: Male
  Weight: 102.7 kg

DRUGS (11)
  1. ADVAIR DISKUS 100/50 [Suspect]
     Indication: CHRONIC OBSTRUCTIVE PULMONARY DISEASE
     Dosage: 1PUFF TWICE PER DAY
     Route: 055
     Dates: start: 19990101, end: 20090729
  2. ALPRAZOLAM [Concomitant]
  3. BONIVA [Concomitant]
  4. OXYCODONE [Concomitant]
  5. PERCOCET [Concomitant]
  6. ACIPHEX [Concomitant]
  7. LEXAPRO [Concomitant]
  8. FLEXERIL [Concomitant]
  9. NABUMETONE [Concomitant]
  10. SINGULAIR [Concomitant]
  11. BIAXIN [Concomitant]

REACTIONS (16)
  - ADVERSE DRUG REACTION [None]
  - BLOOD PRESSURE INCREASED [None]
  - CHEST PAIN [None]
  - CHOKING [None]
  - COUGH [None]
  - DYSGEUSIA [None]
  - FEELING ABNORMAL [None]
  - HYPOVENTILATION [None]
  - LUNG DISORDER [None]
  - MALAISE [None]
  - NON-CARDIAC CHEST PAIN [None]
  - PRODUCT QUALITY ISSUE [None]
  - PROLONGED EXPIRATION [None]
  - RALES [None]
  - RESPIRATORY TRACT IRRITATION [None]
  - WEIGHT DECREASED [None]
